FAERS Safety Report 25132848 (Version 1)
Quarter: 2025Q1

REPORT INFORMATION
  Report Type: Spontaneous
  Country: US (occurrence: None)
  Receive Date: 20250328
  Receipt Date: 20250328
  Transmission Date: 20250409
  Serious: No
  Sender: AXSOME THERAPEUTICS, INC.
  Company Number: US-Axsome Therapeutics, Inc.-AXS202410-001755

PATIENT

DRUGS (15)
  1. SUNOSI [Suspect]
     Active Substance: SOLRIAMFETOL
     Indication: Product used for unknown indication
     Route: 065
  2. XYWAV [Suspect]
     Active Substance: CALCIUM OXYBATE\MAGNESIUM OXYBATE\POTASSIUM OXYBATE\SODIUM OXYBATE
     Indication: Narcolepsy
     Dates: end: 202402
  3. XYWAV [Suspect]
     Active Substance: CALCIUM OXYBATE\MAGNESIUM OXYBATE\POTASSIUM OXYBATE\SODIUM OXYBATE
     Indication: Somnolence
  4. BUSPIRONE HCL [Concomitant]
     Active Substance: BUSPIRONE HYDROCHLORIDE
     Indication: Product used for unknown indication
     Route: 065
  5. METOPROLOL SUCCINATE [Concomitant]
     Active Substance: METOPROLOL SUCCINATE
     Indication: Product used for unknown indication
     Route: 065
     Dates: start: 20210501
  6. TRETINOIN [Concomitant]
     Active Substance: TRETINOIN
     Indication: Product used for unknown indication
     Route: 065
     Dates: start: 20220401
  7. SOOLANTRA [Concomitant]
     Active Substance: IVERMECTIN
     Indication: Product used for unknown indication
     Route: 065
     Dates: start: 20231230
  8. BACLOFEN [Concomitant]
     Active Substance: BACLOFEN
     Indication: Product used for unknown indication
     Route: 065
     Dates: start: 20240201, end: 20241015
  9. CLINDAMYCIN PHOSPHATE [Concomitant]
     Active Substance: CLINDAMYCIN PHOSPHATE
     Indication: Product used for unknown indication
     Route: 065
  10. MONTELUKAST [Concomitant]
     Active Substance: MONTELUKAST
     Indication: Hypersensitivity
     Route: 065
  11. ZOFRAN [Concomitant]
     Active Substance: ONDANSETRON HYDROCHLORIDE
     Indication: Nausea
     Route: 065
  12. COENZYME Q10 [Concomitant]
     Active Substance: DIETARY SUPPLEMENT\UBIDECARENONE
     Indication: Product used for unknown indication
     Route: 065
     Dates: start: 20240710
  13. DIETARY SUPPLEMENT\HERBALS\MILK THISTLE [Concomitant]
     Active Substance: MILK THISTLE
     Indication: Product used for unknown indication
     Route: 065
     Dates: start: 20231010
  14. VITAMINS [Concomitant]
     Active Substance: VITAMINS
     Indication: Product used for unknown indication
     Route: 065
     Dates: start: 20221010
  15. AUGMENTIN [Concomitant]
     Active Substance: AMOXICILLIN\CLAVULANATE POTASSIUM
     Indication: Product used for unknown indication
     Route: 065
     Dates: end: 2021

REACTIONS (6)
  - Night sweats [Unknown]
  - Sleep-related eating disorder [Unknown]
  - Tremor [Unknown]
  - Insomnia [Unknown]
  - Anxiety [Unknown]
  - Bruxism [Unknown]
